FAERS Safety Report 12695932 (Version 6)
Quarter: 2017Q3

REPORT INFORMATION
  Report Type: Spontaneous
  Country: US (occurrence: US)
  Receive Date: 20160829
  Receipt Date: 20170714
  Transmission Date: 20171127
  Serious: No
  Sender: FDA-Public Use
  Company Number: US-ACTELION-A-NJ2016-141077

PATIENT
  Age: 56 Year
  Sex: Female
  Weight: 113.38 kg

DRUGS (13)
  1. LOSARTAN. [Concomitant]
     Active Substance: LOSARTAN
  2. UPTRAVI [Suspect]
     Active Substance: SELEXIPAG
     Dosage: 800 MCG, BID
     Route: 048
  3. DULOXETINE. [Concomitant]
     Active Substance: DULOXETINE
  4. SILDENAFIL. [Concomitant]
     Active Substance: SILDENAFIL
  5. LASIX [Concomitant]
     Active Substance: FUROSEMIDE
  6. GABAPENTIN. [Concomitant]
     Active Substance: GABAPENTIN
  7. UPTRAVI [Suspect]
     Active Substance: SELEXIPAG
     Indication: PULMONARY ARTERIAL HYPERTENSION
     Dosage: 1600 MCG, BID
     Route: 048
     Dates: start: 20160623
  8. OPSUMIT [Suspect]
     Active Substance: MACITENTAN
     Indication: PULMONARY ARTERIAL HYPERTENSION
     Dosage: 10 MG, QD
     Route: 048
  9. OMEPRAZOLE. [Concomitant]
     Active Substance: OMEPRAZOLE
  10. AMBIEN [Concomitant]
     Active Substance: ZOLPIDEM TARTRATE
  11. ADCIRCA [Concomitant]
     Active Substance: TADALAFIL
  12. LEVOTHYROXINE. [Concomitant]
     Active Substance: LEVOTHYROXINE
  13. METFORMIN [Concomitant]
     Active Substance: METFORMIN HYDROCHLORIDE

REACTIONS (15)
  - Back pain [Unknown]
  - Fatigue [Not Recovered/Not Resolved]
  - Malaise [Unknown]
  - Neck pain [Unknown]
  - Pain in extremity [Unknown]
  - Diarrhoea [Unknown]
  - Pain in jaw [Unknown]
  - Burning feet syndrome [Unknown]
  - Asthenia [Unknown]
  - Lower respiratory tract infection [Unknown]
  - Headache [Unknown]
  - Condition aggravated [Unknown]
  - Flushing [Unknown]
  - Sinusitis [Unknown]
  - Conjunctivitis [Unknown]

NARRATIVE: CASE EVENT DATE: 20161202
